FAERS Safety Report 12682101 (Version 1)
Quarter: 2016Q3

REPORT INFORMATION
  Report Type: Spontaneous
  Country: GR (occurrence: GR)
  Receive Date: 20160824
  Receipt Date: 20160824
  Transmission Date: 20161109
  Serious: Yes (Hospitalization)
  Sender: FDA-Public Use
  Company Number: GR-DSJP-DSU-2016-128172

PATIENT

DRUGS (4)
  1. CHOLESTAGEL [Suspect]
     Active Substance: COLESEVELAM HYDROCHLORIDE
     Indication: TYPE IIA HYPERLIPIDAEMIA
     Dosage: 1250 MG, QD
     Route: 048
     Dates: start: 201310, end: 201407
  2. CRESTOR [Suspect]
     Active Substance: ROSUVASTATIN CALCIUM
     Indication: TYPE IIA HYPERLIPIDAEMIA
     Dosage: 5 MG, QD
     Route: 048
     Dates: start: 201310, end: 201409
  3. LIPITOR [Suspect]
     Active Substance: ATORVASTATIN CALCIUM
     Indication: TYPE IIA HYPERLIPIDAEMIA
     Dosage: 40 MG, QD
     Route: 048
     Dates: end: 201310
  4. EZETROL [Suspect]
     Active Substance: EZETIMIBE
     Indication: TYPE IIA HYPERLIPIDAEMIA
     Dosage: 10 MG, QD
     Route: 048
     Dates: start: 201310, end: 201409

REACTIONS (3)
  - Off label use [Unknown]
  - Myositis [Recovered/Resolved]
  - Myalgia [Recovered/Resolved]
